FAERS Safety Report 7504342-2 (Version None)
Quarter: 2011Q2

REPORT INFORMATION
  Report Type: 
  Country: None (occurrence: None)
  Receive Date: 20110404
  Receipt Date: 20101108
  Transmission Date: 20111010
  Serious: Yes (Other)
  Sender: FDA-Public Use
  Company Number: 011849

PATIENT
  Age: 16 Year
  Sex: Male

DRUGS (5)
  1. ATG (ANTILYMPHOCYTE IMMUNOGLOBULIN (HORSE)) [Concomitant]
  2. CYCLOSPORINE [Concomitant]
  3. BUSULFEX [Suspect]
     Indication: BONE MARROW CONDITIONING REGIMEN
     Dosage: 0.8 MG/KG, Q6HR
  4. FLUDARABINE (FLUDARABINE) [Concomitant]
  5. MYCOPHENOLATE MOFETIL [Concomitant]

REACTIONS (1)
  - CHRONIC GRAFT VERSUS HOST DISEASE [None]
